FAERS Safety Report 14241301 (Version 2)
Quarter: 2017Q4

REPORT INFORMATION
  Report Type: Report from Study
  Country: None (occurrence: KR)
  Receive Date: 20171130
  Receipt Date: 20171201
  Transmission Date: 20180321
  Serious: Yes (Hospitalization)
  Sender: FDA-Public Use
  Company Number: KR-ABBVIE-17K-090-2179580-00

PATIENT
  Age: 62 Year
  Sex: Male
  Weight: 62 kg

DRUGS (35)
  1. HUMIRA [Suspect]
     Active Substance: ADALIMUMAB
     Route: 058
     Dates: start: 20170927
  2. AZAPRINE [Concomitant]
     Active Substance: AZATHIOPRINE
     Dates: start: 20170907
  3. FOLIC ACID. [Concomitant]
     Active Substance: FOLIC ACID
     Indication: VITAMIN SUPPLEMENTATION
     Route: 048
     Dates: start: 20170904
  4. SIRDALUD [Concomitant]
     Active Substance: TIZANIDINE
     Route: 048
     Dates: start: 20170907, end: 20170912
  5. ASPIRIN. [Concomitant]
     Active Substance: ASPIRIN
     Route: 048
     Dates: start: 20170912, end: 20170912
  6. MIRTAPIN [Concomitant]
     Indication: AFFECTIVE DISORDER
     Route: 048
     Dates: start: 20170905, end: 20170905
  7. TARGIN [Concomitant]
     Active Substance: NALOXONE HYDROCHLORIDE\OXYCODONE HYDROCHLORIDE
     Indication: VESTIBULAR MIGRAINE
     Route: 048
     Dates: start: 20170907, end: 20170907
  8. WINUF INJECTION [Concomitant]
     Indication: NUTRITIONAL SUPPLEMENTATION
     Route: 042
     Dates: start: 20170904, end: 20170904
  9. ZOPYRIN [Concomitant]
     Indication: BEHCET^S SYNDROME
     Route: 048
     Dates: start: 20170904
  10. AZAPRINE [Concomitant]
     Active Substance: AZATHIOPRINE
     Indication: BEHCET^S SYNDROME
     Route: 048
     Dates: start: 20170904, end: 20170905
  11. ACLOFEN [Concomitant]
     Route: 048
     Dates: start: 20170907, end: 20170912
  12. TARGIN [Concomitant]
     Active Substance: NALOXONE HYDROCHLORIDE\OXYCODONE HYDROCHLORIDE
     Route: 048
     Dates: start: 20170908, end: 20170912
  13. HUMIRA [Suspect]
     Active Substance: ADALIMUMAB
     Route: 058
     Dates: start: 20170905, end: 20170905
  14. SOLONDO [Concomitant]
     Active Substance: PREDNISOLONE
     Route: 048
     Dates: start: 20170912
  15. TROPHERINE [Concomitant]
     Indication: FUNDOSCOPY
     Route: 050
     Dates: start: 20170904, end: 20170905
  16. TEGRETOL [Concomitant]
     Active Substance: CARBAMAZEPINE
     Indication: NEUROPATHY PERIPHERAL
     Route: 048
     Dates: start: 20170907, end: 20170912
  17. DUPHALAC SYRUP [Concomitant]
     Active Substance: LACTULOSE
     Indication: CONSTIPATION PROPHYLAXIS
     Route: 048
     Dates: start: 20170910, end: 20170910
  18. HUMIRA [Suspect]
     Active Substance: ADALIMUMAB
     Route: 058
     Dates: start: 20170919, end: 20170919
  19. FEROBA YOU [Concomitant]
     Route: 048
     Dates: start: 20170907
  20. ASPIRIN. [Concomitant]
     Active Substance: ASPIRIN
     Indication: OSTEONECROSIS
     Route: 048
     Dates: start: 20170904, end: 20170911
  21. HUMIRA [Suspect]
     Active Substance: ADALIMUMAB
     Indication: BEHCET^S SYNDROME
     Route: 058
     Dates: start: 20160726, end: 20160726
  22. SOLONDO [Concomitant]
     Active Substance: PREDNISOLONE
     Indication: BEHCET^S SYNDROME
     Route: 048
     Dates: start: 20170904, end: 20170912
  23. COLCHIN [Concomitant]
     Indication: PROPHYLAXIS
     Route: 048
     Dates: start: 20170907
  24. PLETAAL [Concomitant]
     Active Substance: CILOSTAZOL
     Indication: PROPHYLAXIS
     Route: 048
     Dates: start: 20170908, end: 20170912
  25. YUHANZID [Concomitant]
     Active Substance: ISONIAZID
     Route: 048
     Dates: start: 20170907
  26. SEROQUEL [Concomitant]
     Active Substance: QUETIAPINE FUMARATE
     Indication: AFFECTIVE DISORDER
     Route: 048
     Dates: start: 20170906, end: 20170906
  27. CARMAZEPINE [Concomitant]
     Indication: NEUROPATHY PERIPHERAL
     Route: 048
     Dates: start: 20170904, end: 20170906
  28. ACLOFEN [Concomitant]
     Indication: OSTEONECROSIS
     Route: 048
     Dates: start: 20170904, end: 20170905
  29. ZYPREXA [Concomitant]
     Active Substance: OLANZAPINE
     Indication: AFFECTIVE DISORDER
     Route: 048
     Dates: start: 20170908
  30. MYGRIZINE [Concomitant]
     Indication: VESTIBULAR MIGRAINE
     Route: 048
     Dates: start: 20170927, end: 20171006
  31. COLCHIN [Concomitant]
     Indication: PROPHYLAXIS
     Route: 048
     Dates: start: 20170904, end: 20170905
  32. YUHANZID [Concomitant]
     Active Substance: ISONIAZID
     Indication: LATENT TUBERCULOSIS
     Route: 048
     Dates: start: 20170904, end: 20170905
  33. FEROBA YOU [Concomitant]
     Indication: PROPHYLAXIS
     Route: 048
     Dates: start: 20170904, end: 20170905
  34. SIRDALUD [Concomitant]
     Active Substance: TIZANIDINE
     Indication: VESTIBULAR MIGRAINE
     Route: 048
     Dates: start: 20170904, end: 20170905
  35. REMERON [Concomitant]
     Active Substance: MIRTAZAPINE
     Indication: AFFECTIVE DISORDER
     Route: 048
     Dates: start: 20170904, end: 20170904

REACTIONS (2)
  - Dizziness [Recovered/Resolved]
  - Hypophagia [Recovered/Resolved]

NARRATIVE: CASE EVENT DATE: 20170830
